FAERS Safety Report 10171958 (Version 7)
Quarter: 2019Q2

REPORT INFORMATION
  Report Type: Spontaneous
  Country: US (occurrence: US)
  Receive Date: 20140515
  Receipt Date: 20190411
  Transmission Date: 20190711
  Serious: No
  Sender: FDA-Public Use
  Company Number: US-PFIZER INC-2014128267

PATIENT
  Sex: Female

DRUGS (21)
  1. CODEINE [Suspect]
     Active Substance: CODEINE
     Dosage: UNK
  2. VALIUM [Suspect]
     Active Substance: DIAZEPAM
     Dosage: UNK
  3. FLEXERIL [Suspect]
     Active Substance: CYCLOBENZAPRINE HYDROCHLORIDE
     Dosage: UNK
  4. CLONIDINE HYDROCHLORIDE. [Suspect]
     Active Substance: CLONIDINE HYDROCHLORIDE
  5. TEVETEN HCT [Suspect]
     Active Substance: EPROSARTAN MESYLATE\HYDROCHLOROTHIAZIDE
     Dosage: UNK
  6. TRILEPTAL [Suspect]
     Active Substance: OXCARBAZEPINE
     Dosage: 150 MG, UNK
  7. AGGRENOX [Suspect]
     Active Substance: ASPIRIN\DIPYRIDAMOLE
     Dosage: UNK
  8. AVALIDE [Suspect]
     Active Substance: HYDROCHLOROTHIAZIDE\IRBESARTAN
     Dosage: UNK
  9. VASERETIC [Suspect]
     Active Substance: ENALAPRIL MALEATE\HYDROCHLOROTHIAZIDE
     Dosage: UNK
  10. MORPHINE SULFATE. [Suspect]
     Active Substance: MORPHINE SULFATE
     Dosage: UNK
  11. IMITREX [Suspect]
     Active Substance: SUMATRIPTAN SUCCINATE
     Dosage: UNK
  12. UNIRETIC [AMILORIDE HYDROCHLORIDE;HYDROCHLOROTHIAZIDE] [Suspect]
     Active Substance: AMILORIDE HYDROCHLORIDE\HYDROCHLOROTHIAZIDE
     Dosage: UNK
  13. ACCURETIC [Suspect]
     Active Substance: HYDROCHLOROTHIAZIDE\QUINAPRIL HYDROCHLORIDE
     Dosage: UNK
  14. ULTRAM [Suspect]
     Active Substance: TRAMADOL HYDROCHLORIDE
     Dosage: UNK
  15. BYVALSON [Suspect]
     Active Substance: NEBIVOLOL HYDROCHLORIDE\VALSARTAN
     Dosage: UNK
  16. INDERAL [Suspect]
     Active Substance: PROPRANOLOL HYDROCHLORIDE
     Dosage: UNK
  17. TALWIN [Suspect]
     Active Substance: PENTAZOCINE LACTATE
     Dosage: UNK
  18. CATAPRES [Suspect]
     Active Substance: CLONIDINE HYDROCHLORIDE
     Dosage: UNK
  19. DEMEROL [Suspect]
     Active Substance: MEPERIDINE HYDROCHLORIDE
     Dosage: UNK
  20. ACTONEL [Suspect]
     Active Substance: RISEDRONATE SODIUM
     Dosage: 35 MG, UNK
  21. ZUBSOLV [Suspect]
     Active Substance: BUPRENORPHINE HYDROCHLORIDE\NALOXONE HYDROCHLORIDE
     Dosage: UNK

REACTIONS (1)
  - Drug hypersensitivity [Unknown]
